FAERS Safety Report 6389596-0 (Version None)
Quarter: 2009Q4

REPORT INFORMATION
  Report Type: 
  Country: None (occurrence: None)
  Receive Date: 20091006
  Receipt Date: 20070907
  Transmission Date: 20100525
  Serious: Yes (Hospitalization, Other)
  Sender: FDA-Public Use
  Company Number: US-ASTRAZENECA-2006UW22074

PATIENT
  Age: 353 Month
  Sex: Female
  Weight: 61.2 kg

DRUGS (5)
  1. SEROQUEL [Suspect]
     Indication: DEPRESSION
     Route: 048
     Dates: start: 20030401
  2. SEROQUEL [Suspect]
     Dosage: 100MG
     Route: 048
     Dates: start: 20030903
  3. DEPAKOTE [Concomitant]
     Dosage: 500-1000 MG
     Route: 048
     Dates: start: 20030903
  4. HYDROCHLOROTHIAZIDE [Concomitant]
     Dates: start: 20030818
  5. TRAZODONE [Concomitant]
     Dosage: 100 MG
     Dates: start: 20030903

REACTIONS (5)
  - DIABETES MELLITUS [None]
  - DIABETIC COMA [None]
  - DIABETIC KETOACIDOSIS [None]
  - DIABETIC NEPHROPATHY [None]
  - DIABETIC RETINOPATHY [None]
